FAERS Safety Report 9840702 (Version 1)
Quarter: 2014Q1

REPORT INFORMATION
  Report Type: Spontaneous
  Country: AR (occurrence: AR)
  Receive Date: 20140124
  Receipt Date: 20140124
  Transmission Date: 20141002
  Serious: Yes (Other)
  Sender: FDA-Public Use
  Company Number: PHHY2014AR007523

PATIENT
  Sex: Male

DRUGS (2)
  1. TEGRETOL [Suspect]
     Indication: CONVULSION
     Dosage: 3 DF, DAILY
     Route: 048
  2. TEGRETOL [Suspect]
     Dosage: 6 ML, TID
     Route: 048

REACTIONS (3)
  - Measles [Recovered/Resolved]
  - Disease recurrence [Unknown]
  - Convulsion [Recovered/Resolved]
